FAERS Safety Report 13469704 (Version 5)
Quarter: 2017Q3

REPORT INFORMATION
  Report Type: Report from Study
  Country: None (occurrence: US)
  Receive Date: 20170422
  Receipt Date: 20170906
  Transmission Date: 20171127
  Serious: Yes (Hospitalization)
  Sender: FDA-Public Use
  Company Number: US-ABBVIE-17K-163-1915016-00

PATIENT
  Sex: Male
  Weight: 172.52 kg

DRUGS (2)
  1. HUMIRA [Suspect]
     Active Substance: ADALIMUMAB
     Route: 058
     Dates: start: 201705
  2. HUMIRA [Suspect]
     Active Substance: ADALIMUMAB
     Indication: COLITIS ULCERATIVE
     Route: 058
     Dates: end: 2017

REACTIONS (7)
  - Weight increased [Not Recovered/Not Resolved]
  - Panic attack [Recovered/Resolved]
  - Throat tightness [Recovered/Resolved]
  - Cardiac disorder [Unknown]
  - Memory impairment [Unknown]
  - Cerebrovascular accident [Recovering/Resolving]
  - Gait disturbance [Recovering/Resolving]

NARRATIVE: CASE EVENT DATE: 2017
